FAERS Safety Report 10032691 (Version 1)
Quarter: 2014Q1

REPORT INFORMATION
  Report Type: Spontaneous
  Country: FR (occurrence: FR)
  Receive Date: 20140324
  Receipt Date: 20140324
  Transmission Date: 20141002
  Serious: Yes (Hospitalization)
  Sender: FDA-Public Use
  Company Number: FR-GLAXOSMITHKLINE-B0976983A

PATIENT
  Age: 85 Year
  Sex: Male
  Weight: 105 kg

DRUGS (6)
  1. ARIXTRA [Suspect]
     Indication: ATRIAL FIBRILLATION
     Dosage: 2.5MG PER DAY
     Route: 058
     Dates: start: 20140220, end: 20140305
  2. KARDEGIC [Suspect]
     Indication: PERIPHERAL ISCHAEMIA
     Dosage: 75MG PER DAY
     Route: 048
     Dates: start: 20140124
  3. LOVENOX [Concomitant]
     Indication: PERIPHERAL ISCHAEMIA
     Dosage: 3000IU TWICE PER DAY
     Route: 058
     Dates: start: 20140124, end: 20140213
  4. XARELTO [Concomitant]
     Indication: ATRIAL FIBRILLATION
     Route: 048
     Dates: start: 20140217, end: 20140220
  5. HEPARIN [Concomitant]
     Indication: PERIPHERAL ISCHAEMIA
     Dosage: 14200IU PER DAY
     Route: 042
     Dates: start: 20140120, end: 20140122
  6. CALCIPARIN [Concomitant]
     Indication: PERIPHERAL ISCHAEMIA
     Route: 058
     Dates: start: 20140122, end: 20140124

REACTIONS (3)
  - Gingival bleeding [Not Recovered/Not Resolved]
  - Inappropriate schedule of drug administration [Unknown]
  - Off label use [Unknown]
